FAERS Safety Report 26021165 (Version 1)
Quarter: 2025Q4

REPORT INFORMATION
  Report Type: Spontaneous
  Country: US (occurrence: None)
  Receive Date: 20251108
  Receipt Date: 20251108
  Transmission Date: 20260118
  Serious: Yes (Hospitalization)
  Sender: FDA-CTU
  Company Number: None

PATIENT
  Age: 54 Year
  Sex: Female

DRUGS (5)
  1. AMBRISENTAN [Suspect]
     Active Substance: AMBRISENTAN
     Indication: Pulmonary arterial hypertension
     Dosage: FREQUENCY : DAILY;?
     Route: 048
     Dates: start: 20250609
  2. SILDENAFIL CITRATE [Concomitant]
     Active Substance: SILDENAFIL CITRATE
  3. WINREVAIR [Concomitant]
     Active Substance: SOTATERCEPT-CSRK
  4. TREPROSTINIL [Concomitant]
     Active Substance: TREPROSTINIL
  5. SODIUM CHLOR SDV (50ML/FTV) [Concomitant]

REACTIONS (4)
  - Vascular device infection [None]
  - Catheter site erythema [None]
  - Catheter site pain [None]
  - Catheter site scab [None]

NARRATIVE: CASE EVENT DATE: 20251014
